FAERS Safety Report 5401280-6 (Version None)
Quarter: 2007Q3

REPORT INFORMATION
  Report Type: 
  Country: None (occurrence: None)
  Receive Date: 20070731
  Receipt Date: 20070720
  Transmission Date: 20080115
  Serious: Yes (Hospitalization, Other)
  Sender: FDA-Public Use
  Company Number: GB-JNJFOC-20070704884

PATIENT
  Sex: Female
  Weight: 56 kg

DRUGS (6)
  1. REMICADE [Suspect]
     Indication: RHEUMATOID ARTHRITIS
     Route: 042
  2. METHOTREXATE SODIUM [Concomitant]
  3. CO-PROXAMOL [Concomitant]
  4. FOLIC ACID [Concomitant]
  5. FOSAMAX [Concomitant]
  6. VOLTAREN [Concomitant]

REACTIONS (2)
  - DISLOCATION OF JOINT PROSTHESIS [None]
  - FEMORAL NECK FRACTURE [None]
